FAERS Safety Report 9720637 (Version 2)
Quarter: 2014Q1

REPORT INFORMATION
  Report Type: Report from Study
  Country: JP (occurrence: JP)
  Receive Date: 20131129
  Receipt Date: 20140120
  Transmission Date: 20141002
  Serious: Yes (Other)
  Sender: FDA-Public Use
  Company Number: PHHY2013JP137298

PATIENT
  Age: 70 Year
  Sex: Female

DRUGS (19)
  1. AMN107 [Suspect]
     Indication: CHRONIC MYELOID LEUKAEMIA
     Dosage: 200 MG, DAY
     Route: 048
     Dates: start: 20100324, end: 20100502
  2. AMN107 [Suspect]
     Dosage: 200 MG, DAY
     Route: 048
     Dates: start: 20100509, end: 20100531
  3. AMN107 [Suspect]
     Dosage: 200 MG, DAY
     Route: 048
     Dates: start: 20100630, end: 20100720
  4. AMN107 [Suspect]
     Dosage: 200 MG, DAY
     Route: 048
     Dates: start: 20100814, end: 20100907
  5. AMN107 [Suspect]
     Dosage: 200 MG, DAY
     Route: 048
     Dates: start: 20100928, end: 20101022
  6. AMN107 [Suspect]
     Dosage: 200 MG, DAY
     Route: 048
     Dates: start: 20101112, end: 20101221
  7. AMN107 [Suspect]
     Dosage: 200 MG, DAY
     Route: 048
     Dates: start: 20110107, end: 20110207
  8. AMN107 [Suspect]
     Dosage: 200 MG, DAY
     Route: 048
     Dates: start: 20110301, end: 20120220
  9. AMN107 [Suspect]
     Dosage: 300 MG, DAY
     Route: 048
     Dates: start: 20120221, end: 20120409
  10. AMN107 [Suspect]
     Dosage: 200 MG, DAY
     Route: 048
     Dates: start: 20120410, end: 20121130
  11. FRANDOL S [Concomitant]
     Indication: ANGINA PECTORIS
     Dosage: 40 MG, TID
     Dates: start: 20100302
  12. FLUCORT [Concomitant]
     Dates: start: 20100413, end: 20100426
  13. RESTAMIN CORTISONE [Concomitant]
     Dates: start: 20100427, end: 20100505
  14. FLAVITAN [Concomitant]
     Indication: CONJUNCTIVITIS
     Dosage: 5 ML
     Dates: start: 20091117
  15. FERROMIA [Concomitant]
     Indication: ANAEMIA
     Dosage: 50 MG
     Route: 048
     Dates: start: 20111213, end: 20121125
  16. FOLIAMIN [Concomitant]
     Indication: ANAEMIA
     Dosage: 15 MG
     Route: 048
     Dates: start: 20111213, end: 20121125
  17. PYDOXAL [Concomitant]
     Indication: ANAEMIA
     Dosage: 30 MG
     Route: 048
     Dates: start: 20111213, end: 20121125
  18. ASPARA POTASSIUM [Concomitant]
     Indication: PROPHYLAXIS
     Dosage: 900 MG
     Route: 048
     Dates: start: 20120911
  19. REBAMIPIDE [Concomitant]
     Indication: PROPHYLAXIS
     Dosage: 100 MG
     Route: 048
     Dates: start: 20121102

REACTIONS (2)
  - Malignant neoplasm progression [Unknown]
  - Chronic myeloid leukaemia [Unknown]
